FAERS Safety Report 18730625 (Version 1)
Quarter: 2021Q1

REPORT INFORMATION
  Report Type: Spontaneous
  Country: JP (occurrence: JP)
  Receive Date: 20210112
  Receipt Date: 20210112
  Transmission Date: 20210419
  Serious: Yes (Hospitalization)
  Sender: FDA-Public Use
  Company Number: JP-TEVA-2021-JP-1867229

PATIENT
  Age: 50 Year
  Sex: Male

DRUGS (3)
  1. PREDNISOLONE. [Suspect]
     Active Substance: PREDNISOLONE
     Indication: ALLERGIC BRONCHOPULMONARY MYCOSIS
     Dosage: 30 MILLIGRAM DAILY;
     Route: 065
  2. VILANTEROL/FLUTICASONE FUROATE [Suspect]
     Active Substance: FLUTICASONE FUROATE\VILANTEROL TRIFENATATE
     Indication: ASTHMA
     Route: 065
  3. ITRACONAZOLE. [Suspect]
     Active Substance: ITRACONAZOLE
     Indication: ALLERGIC BRONCHOPULMONARY MYCOSIS
     Route: 065

REACTIONS (5)
  - Pneumonia pseudomonal [Recovered/Resolved]
  - Septic arthritis staphylococcal [Recovered/Resolved]
  - Staphylococcal sepsis [Recovered/Resolved]
  - Allergic bronchopulmonary mycosis [Recovered/Resolved]
  - Drug ineffective [Unknown]
